FAERS Safety Report 9637177 (Version 1)
Quarter: 2013Q4

REPORT INFORMATION
  Report Type: Spontaneous
  Country: GB (occurrence: GB)
  Receive Date: 20131022
  Receipt Date: 20131022
  Transmission Date: 20140711
  Serious: No
  Sender: FDA-Public Use
  Company Number: GB-JNJFOC-20131010623

PATIENT
  Age: 80 Year
  Sex: Female

DRUGS (2)
  1. DUROGESIC DTRANS [Suspect]
     Indication: PAIN
     Route: 062
  2. DUROGESIC DTRANS [Suspect]
     Indication: PAIN
     Route: 062

REACTIONS (4)
  - Drug prescribing error [Unknown]
  - Nausea [Unknown]
  - Dizziness [Unknown]
  - Drug ineffective [Unknown]
